FAERS Safety Report 10841633 (Version 2)
Quarter: 2015Q2

REPORT INFORMATION
  Report Type: Spontaneous
  Country: IT (occurrence: IT)
  Receive Date: 20150220
  Receipt Date: 20150618
  Transmission Date: 20150821
  Serious: Yes (Hospitalization, Other)
  Sender: FDA-Public Use
  Company Number: IT-AUROBINDO-AUR-APL-2015-01448

PATIENT
  Age: 78 Year
  Sex: Female

DRUGS (1)
  1. LEVOFLOXACIN 500MG [Suspect]
     Active Substance: LEVOFLOXACIN
     Indication: URINARY TRACT INFECTION
     Dosage: 500 MG, DAILY
     Route: 048
     Dates: start: 20141211, end: 20141215

REACTIONS (3)
  - Tendon rupture [Not Recovered/Not Resolved]
  - Haemorrhage [Not Recovered/Not Resolved]
  - Swelling [Not Recovered/Not Resolved]

NARRATIVE: CASE EVENT DATE: 20141215
